FAERS Safety Report 8464330-9 (Version None)
Quarter: 2012Q2

REPORT INFORMATION
  Report Type: 
  Country: None (occurrence: None)
  Receive Date: 20120625
  Receipt Date: 20120612
  Transmission Date: 20120825
  Serious: Yes (Congenital Anomaly)
  Sender: FDA-Public Use
  Company Number: TR-MYLANLABS-2012S1012169

PATIENT
  Age: 32 Year
  Sex: Female

DRUGS (2)
  1. OXCARBAZEPINE [Suspect]
     Dosage: 300MG
     Route: 065
  2. TOPIRAMATE [Suspect]
     Dosage: 100MG
     Route: 065

REACTIONS (14)
  - CARDIOMEGALY [None]
  - RENAL DYSPLASIA [None]
  - ANORECTAL AGENESIS [None]
  - LIMB DEFORMITY [None]
  - CONGENITAL ANOMALY OF ADRENAL GLAND [None]
  - CONGENITAL BLADDER ANOMALY [None]
  - LIMB MALFORMATION [None]
  - CLEFT LIP AND PALATE [None]
  - MATERNAL EXPOSURE DURING PREGNANCY [None]
  - PERICARDIAL EFFUSION [None]
  - CONGENITAL FOOT MALFORMATION [None]
  - OLIGOHYDRAMNIOS [None]
  - LIMB REDUCTION DEFECT [None]
  - SINGLE FUNCTIONAL KIDNEY [None]
